FAERS Safety Report 9163874 (Version 1)
Quarter: 2013Q1

REPORT INFORMATION
  Report Type: Report from Study
  Country: JP (occurrence: JP)
  Receive Date: 20130314
  Receipt Date: 20130314
  Transmission Date: 20140127
  Serious: Yes (Hospitalization)
  Sender: FDA-Public Use
  Company Number: JP-B.I. PHARMACEUTICALS,INC./RIDGEFIELD-2012-BI-02328NB

PATIENT
  Age: 83 Year
  Sex: Female
  Weight: 62.4 kg

DRUGS (8)
  1. PRAZAXA [Suspect]
     Indication: ATRIAL FIBRILLATION
     Dosage: 220 MG
     Route: 048
     Dates: start: 20120510
  2. PRAZAXA [Suspect]
     Indication: PROPHYLAXIS
  3. PRAZAXA [Suspect]
     Indication: PROPHYLAXIS
  4. MOBIC [Suspect]
     Dosage: 5 MG
     Route: 048
  5. MICARDIS [Concomitant]
     Dosage: 40 MG
     Route: 048
  6. CONIEL [Concomitant]
     Dosage: 8 MG
     Route: 048
  7. PRAVASTAN [Concomitant]
     Dosage: 10 MG
     Route: 048
  8. HALCION [Concomitant]
     Dosage: 0.25 MG
     Route: 048

REACTIONS (2)
  - Mediastinal abscess [Unknown]
  - Gastrooesophageal reflux disease [Unknown]
